FAERS Safety Report 5270547-7 (Version None)
Quarter: 2007Q1

REPORT INFORMATION
  Report Type: 
  Country: None (occurrence: None)
  Receive Date: 20070315
  Receipt Date: 20070310
  Transmission Date: 20070707
  Serious: Yes (Death)
  Sender: FDA-Public Use
  Company Number: 224393

PATIENT
  Age: 77 Year
  Sex: Female
  Weight: 72.6 kg

DRUGS (1)
  1. HERCEPTIN [Suspect]
     Indication: BREAST CANCER
     Dosage: SINGLE, INTRAVENOUS
     Route: 042
     Dates: start: 20060420

REACTIONS (2)
  - NAUSEA [None]
  - PERIPHERAL COLDNESS [None]
